FAERS Safety Report 23499616 (Version 4)
Quarter: 2024Q1

REPORT INFORMATION
  Report Type: Report from Study
  Country: CA (occurrence: CA)
  Receive Date: 20240208
  Receipt Date: 20240317
  Transmission Date: 20240410
  Serious: Yes (Other)
  Sender: FDA-Public Use
  Company Number: CA-JNJFOC-20240115883

PATIENT
  Age: 16 Year
  Sex: Male

DRUGS (3)
  1. REMICADE [Suspect]
     Active Substance: INFLIXIMAB
     Indication: Colitis ulcerative
     Dosage: INFUSIONS: 4
     Route: 041
     Dates: start: 20231108
  2. REMICADE [Suspect]
     Active Substance: INFLIXIMAB
     Dosage: WEEKS 0,1,4 THEN EVERY 4 WEEKS?EXPIRY DATE: 30-APR-2026
     Route: 041
     Dates: start: 20231108
  3. REMICADE [Suspect]
     Active Substance: INFLIXIMAB
     Route: 041

REACTIONS (6)
  - Colitis ulcerative [Not Recovered/Not Resolved]
  - Adverse event [Unknown]
  - General physical health deterioration [Unknown]
  - Product dose omission issue [Unknown]
  - Off label use [Unknown]
  - Weight increased [Unknown]
